FAERS Safety Report 15668832 (Version 20)
Quarter: 2021Q4

REPORT INFORMATION
  Report Type: Spontaneous
  Country: GB (occurrence: GB)
  Receive Date: 20181129
  Receipt Date: 20211231
  Transmission Date: 20220303
  Serious: Yes (Other)
  Sender: FDA-Public Use
  Company Number: GB-EMA-DD-20181109-SAHU_K-170808

PATIENT
  Age: 51 Year
  Sex: Female

DRUGS (72)
  1. ANASTROZOLE [Suspect]
     Active Substance: ANASTROZOLE
     Indication: Breast cancer metastatic
     Dosage: 1 MILLIGRAM, QD (CUMULATIVE DOSE 196.042)
     Route: 048
     Dates: start: 20170127
  2. ANASTROZOLE [Suspect]
     Active Substance: ANASTROZOLE
     Dosage: UNK
     Route: 065
  3. DOCETAXEL [Suspect]
     Active Substance: DOCETAXEL
     Indication: Breast cancer metastatic
     Dosage: 130 MILLIGRAM, 3/WEEK, TIW
     Route: 042
     Dates: start: 20160511, end: 20160808
  4. DOCETAXEL [Suspect]
     Active Substance: DOCETAXEL
     Dosage: 120 MILLIGRAM, 3/WEEK, TIW
     Route: 042
     Dates: start: 20160808, end: 20160830
  5. DOCETAXEL [Suspect]
     Active Substance: DOCETAXEL
     Dosage: 360 MG, 1/WEEK (120 MILLIGRAM, 3/WEEK) (ADDITIONAL INFO: ROUTE 042; CUMULATIVE DOSE: 3718 MG)
     Route: 042
     Dates: start: 20160808, end: 20160830
  6. DOCETAXEL [Suspect]
     Active Substance: DOCETAXEL
     Dosage: 130 MILLIGRAM, 3/WEEK
     Route: 042
     Dates: start: 20160511, end: 20160808
  7. DOCETAXEL [Suspect]
     Active Substance: DOCETAXEL
     Dosage: 390 MILLIGRAM, WEEKLY
     Route: 042
     Dates: start: 20160511, end: 20160808
  8. DOCETAXEL [Suspect]
     Active Substance: DOCETAXEL
     Dosage: UNK
     Route: 065
  9. DOCETAXEL [Suspect]
     Active Substance: DOCETAXEL
     Dosage: 130 MILLIGRAM, 3 TIMES/WK (CUMULATIVE DOSE: 2200 MG)
     Route: 042
     Dates: start: 20160511, end: 20160808
  10. NERATINIB [Suspect]
     Active Substance: NERATINIB
     Indication: Breast cancer
     Dosage: 378 MILLIGRAM, Q3WK
     Route: 042
     Dates: start: 20201013
  11. NERATINIB [Suspect]
     Active Substance: NERATINIB
     Dosage: 1 MILLIGRAM, QD (CUMULATIVE DOSE 196.042)
     Route: 042
     Dates: start: 20180925, end: 20200922
  12. NERATINIB [Suspect]
     Active Substance: NERATINIB
     Dosage: 336 MILLIGRAM, Q3WK (CUMULATIVE DOSE: 12832.0 MG) (CUMULATIVE DOSE: 106.469 MG)
     Route: 042
     Dates: start: 20180925, end: 20200922
  13. NERATINIB [Suspect]
     Active Substance: NERATINIB
     Dosage: 336 MG, EVERY 3 WEEKS
     Route: 042
     Dates: start: 20190925, end: 20200925
  14. NERATINIB [Suspect]
     Active Substance: NERATINIB
     Dosage: 378 MG EVERY 3 WEEKS
     Route: 042
     Dates: start: 20201013
  15. ONTRUZANT [Suspect]
     Active Substance: TRASTUZUMAB-DTTB
     Indication: Breast cancer metastatic
     Dosage: 525 MILLIGRAM, Q3WK
     Route: 041
     Dates: start: 20160510, end: 20160510
  16. ONTRUZANT [Suspect]
     Active Substance: TRASTUZUMAB-DTTB
     Dosage: 388.5 MILLIGRAM
     Route: 041
     Dates: start: 20160606, end: 20160606
  17. ONTRUZANT [Suspect]
     Active Substance: TRASTUZUMAB-DTTB
     Dosage: 346.5 MILLIGRAM, 3/WEEK
     Route: 041
     Dates: start: 20170517, end: 20170703
  18. ONTRUZANT [Suspect]
     Active Substance: TRASTUZUMAB-DTTB
     Dosage: 388.5 MILLIGRAM, 3/WEEK
     Route: 041
     Dates: start: 20160718, end: 20160830
  19. ONTRUZANT [Suspect]
     Active Substance: TRASTUZUMAB-DTTB
     Dosage: 357 MILLIGRAM, 3/WEEK, TIW
     Route: 041
     Dates: start: 20170201, end: 20170426
  20. ONTRUZANT [Suspect]
     Active Substance: TRASTUZUMAB-DTTB
     Dosage: 336 MILLIGRAM, 3/WEEK
     Route: 041
     Dates: start: 20170724, end: 20180904
  21. ONTRUZANT [Suspect]
     Active Substance: TRASTUZUMAB-DTTB
     Dosage: 378 MILLIGRAM, UNK
     Route: 041
     Dates: start: 20160627, end: 20160627
  22. ONTRUZANT [Suspect]
     Active Substance: TRASTUZUMAB-DTTB
     Dosage: 367.5 MILLIGRAM, 3/WEEK, TIW
     Route: 041
     Dates: start: 20160920, end: 20170110
  23. ONTRUZANT [Suspect]
     Active Substance: TRASTUZUMAB-DTTB
     Dosage: 378 MILLIGRAM, 1 DOSE/3 WEEKS, TIW
     Route: 041
     Dates: start: 20201013
  24. ONTRUZANT [Suspect]
     Active Substance: TRASTUZUMAB-DTTB
     Dosage: 336 MILLIGRAM, 3DOSE/WEEK
     Route: 042
     Dates: start: 20180925
  25. ONTRUZANT [Suspect]
     Active Substance: TRASTUZUMAB-DTTB
     Dosage: 336 MILLIGRAM
     Route: 042
     Dates: start: 20200922
  26. ONTRUZANT [Suspect]
     Active Substance: TRASTUZUMAB-DTTB
     Dosage: 388.5 MILLIGRAM, 3/WEEK
     Route: 042
     Dates: start: 20170724, end: 20170724
  27. ONTRUZANT [Suspect]
     Active Substance: TRASTUZUMAB-DTTB
     Dosage: UNK
     Route: 065
  28. ONTRUZANT [Suspect]
     Active Substance: TRASTUZUMAB-DTTB
     Indication: HER2 positive breast cancer
     Dosage: 336 MILLIGRAM, 1 DOSE/3 WEEKS
     Route: 042
     Dates: start: 20180915
  29. PERTUZUMAB [Suspect]
     Active Substance: PERTUZUMAB
     Indication: Breast cancer metastatic
     Dosage: 840 MILLIGRAM, 1 DOSE/3 WEEKS, LOADING DOSE
     Route: 042
     Dates: start: 20160510, end: 20160510
  30. PERTUZUMAB [Suspect]
     Active Substance: PERTUZUMAB
     Dosage: 420 MILLIGRAM, 3/WEEK
     Route: 042
     Dates: start: 20160606
  31. PERTUZUMAB [Suspect]
     Active Substance: PERTUZUMAB
     Dosage: UNK
     Route: 065
     Dates: start: 20180510
  32. PERTUZUMAB [Suspect]
     Active Substance: PERTUZUMAB
     Dosage: 420 MILLIGRAM, EVERY 3 WEEKS (DF:230)
     Route: 042
     Dates: start: 20160606
  33. PERTUZUMAB [Suspect]
     Active Substance: PERTUZUMAB
     Dosage: LOADING DOSE
     Route: 065
     Dates: start: 20160510, end: 20160510
  34. PERTUZUMAB [Suspect]
     Active Substance: PERTUZUMAB
     Dosage: UNK
     Route: 042
     Dates: start: 20160606
  35. PERTUZUMAB [Suspect]
     Active Substance: PERTUZUMAB
     Dosage: TRASTUZUMAB WAS GIVEN WITH PERTUZUMAB
     Route: 065
     Dates: start: 20180510
  36. TRASTUZUMAB [Suspect]
     Active Substance: TRASTUZUMAB
     Indication: HER2 positive breast cancer
     Dosage: 525 MILLIGRAM, 1 DOSE/3 WEEKS
     Route: 042
     Dates: start: 20160510, end: 20160510
  37. TRASTUZUMAB [Suspect]
     Active Substance: TRASTUZUMAB
     Dosage: 367.5 MILLIGRAM, 3/WEEK (ADDITIONAL INFO: ROUTE:042) (CUMULATIVE DOSE: 525 MG) (DF: 230)
     Route: 042
     Dates: start: 20160920, end: 20170110
  38. TRASTUZUMAB [Suspect]
     Active Substance: TRASTUZUMAB
     Dosage: 357 MG, TIW
     Route: 042
     Dates: start: 20170201, end: 20170426
  39. TRASTUZUMAB [Suspect]
     Active Substance: TRASTUZUMAB
     Dosage: 388.5 MILLIGRAM (ADDITIONAL INFO: ROUTE:042, DF:230)
     Route: 042
     Dates: start: 20160606, end: 20160606
  40. TRASTUZUMAB [Suspect]
     Active Substance: TRASTUZUMAB
     Dosage: 336 MILLIGRAM, 3/WEEK (ADDITIONAL INFO: ROUTE:042, DF:230)
     Route: 042
     Dates: start: 20170724, end: 20180904
  41. TRASTUZUMAB [Suspect]
     Active Substance: TRASTUZUMAB
     Dosage: 378 MILLIGRAM (ADDITIONAL INFO: ROUTE:042, DF: 230)
     Route: 042
     Dates: start: 20160627, end: 20160627
  42. TRASTUZUMAB [Suspect]
     Active Substance: TRASTUZUMAB
     Dosage: 378 MG, 3/WEEK (PHARMACEUTICAL DOSE FORM: 230)
     Route: 042
     Dates: start: 20201013
  43. TRASTUZUMAB [Suspect]
     Active Substance: TRASTUZUMAB
     Dosage: 388.5 MILLIGRAM, 3/WEEK (ROUTE:042; PHARMACEUTICAL DOSE FORM: 230)
     Route: 042
     Dates: start: 20160718, end: 20160830
  44. TRASTUZUMAB [Suspect]
     Active Substance: TRASTUZUMAB
     Dosage: 346.5 MILLIGRAM, 3/WEEK (ADDITIONAL INFO: ROUTE:042) (CUMULATIVE DOSE: 525 MG)  UNK
     Route: 042
     Dates: start: 20170517, end: 20170703
  45. TRASTUZUMAB [Suspect]
     Active Substance: TRASTUZUMAB
     Dosage: 388.5 MILLIGRAM, 3/WEEK (ROUTE:042; PHARMACEUTICAL DOSE FORM: 230)
     Route: 042
     Dates: start: 20160718, end: 20160830
  46. TRASTUZUMAB [Suspect]
     Active Substance: TRASTUZUMAB
     Dosage: 357 MILLIGRAM, EVERY 3 WEEKS
     Route: 042
     Dates: start: 20170201, end: 20170426
  47. TRASTUZUMAB [Suspect]
     Active Substance: TRASTUZUMAB
     Dosage: 357 MILLIGRAM, 3 TIMES/WK (
     Route: 042
     Dates: start: 20170201, end: 20170426
  48. TRASTUZUMAB [Suspect]
     Active Substance: TRASTUZUMAB
     Dosage: 336 MG, EVERY 3 WEEKS
     Route: 042
     Dates: start: 20180915
  49. TRASTUZUMAB [Suspect]
     Active Substance: TRASTUZUMAB
     Dosage: 336 MILLIGRAM,3/ WEEKLY
     Route: 065
     Dates: start: 20180925, end: 20200922
  50. TRASTUZUMAB [Suspect]
     Active Substance: TRASTUZUMAB
     Dosage: TRASTUZUMAB WAS GIVEN WITH PERTUZUMAB
     Route: 065
     Dates: start: 20180510
  51. TRASTUZUMAB [Suspect]
     Active Substance: TRASTUZUMAB
     Dosage: 388.5 MILLIGRAM, EVERY 3 WEEKS
     Route: 042
     Dates: start: 20160718, end: 20160830
  52. TRASTUZUMAB [Suspect]
     Active Substance: TRASTUZUMAB
     Dosage: 336 MILLIGRAM, 3 TIMES/WK
     Route: 042
     Dates: start: 20170724, end: 20180904
  53. TRASTUZUMAB [Suspect]
     Active Substance: TRASTUZUMAB
     Dosage: 1039.5 MILLIGRAM
     Route: 042
     Dates: start: 20170517, end: 20170703
  54. ENOXAPARIN [Concomitant]
     Active Substance: ENOXAPARIN
     Indication: Product used for unknown indication
     Dosage: 40 MILLIGRAM, UNK
     Route: 058
     Dates: start: 20161101, end: 20161101
  55. CHLORPHENIRAMINE MALEATE [Concomitant]
     Active Substance: CHLORPHENIRAMINE MALEATE
     Indication: Product used for unknown indication
     Dosage: 4 MILLIGRAM
     Route: 048
     Dates: start: 20160627, end: 20160830
  56. CODEINE PHOSPHATE [Concomitant]
     Active Substance: CODEINE PHOSPHATE
     Indication: Product used for unknown indication
     Dosage: 60 MILLIGRAM, UNK
     Route: 048
     Dates: start: 20161101, end: 20161101
  57. CYCLIZINE [Concomitant]
     Active Substance: CYCLIZINE
     Indication: Product used for unknown indication
     Dosage: 50 MILLIGRAM, UNK
     Route: 048
     Dates: start: 20160627, end: 20160830
  58. DEXAMETHASONE [Concomitant]
     Active Substance: DEXAMETHASONE
     Indication: Product used for unknown indication
     Dosage: 8 MILLIGRAM, UNK
     Route: 048
     Dates: start: 20160511, end: 20160830
  59. DOMPERIDONE [Concomitant]
     Active Substance: DOMPERIDONE
     Indication: Product used for unknown indication
     Dosage: UNK
     Route: 065
     Dates: start: 20191211
  60. IRON [Concomitant]
     Active Substance: IRON
     Indication: Product used for unknown indication
     Dosage: UNK
     Route: 048
     Dates: start: 20190612
  61. METOCLOPRAMIDE [Concomitant]
     Active Substance: METOCLOPRAMIDE
     Indication: Product used for unknown indication
     Dosage: 10 MILLIGRAM, UNK
     Route: 048
     Dates: start: 20160511, end: 20160830
  62. ACETAMINOPHEN [Concomitant]
     Active Substance: ACETAMINOPHEN
     Indication: Product used for unknown indication
     Dosage: UNK
     Route: 048
  63. PREGABALIN [Concomitant]
     Active Substance: PREGABALIN
     Indication: Product used for unknown indication
     Dosage: UNK
     Route: 065
  64. RAMIPRIL [Concomitant]
     Active Substance: RAMIPRIL
     Indication: Ejection fraction decreased
     Dosage: 1.25 MILLIGRAM
     Route: 048
     Dates: start: 20190102
  65. RAMIPRIL [Concomitant]
     Active Substance: RAMIPRIL
     Dosage: UNK
     Route: 065
  66. MORPHINE [Concomitant]
     Active Substance: MORPHINE
     Indication: Product used for unknown indication
     Dosage: 10 MILLIGRAM, DAILY, QD
     Route: 048
     Dates: start: 20161101, end: 20161102
  67. MORPHINE [Concomitant]
     Active Substance: MORPHINE
     Dosage: 10 MILLIGRAM, DAILY, QD
     Route: 048
     Dates: start: 20161101, end: 20161102
  68. MORPHINE [Concomitant]
     Active Substance: MORPHINE
     Dosage: 10 MILLIGRAM, DAILY, QD
     Route: 048
     Dates: start: 20161101, end: 20161102
  69. MORPHINE [Concomitant]
     Active Substance: MORPHINE
     Dosage: UNK
     Route: 065
  70. MORPHINE SULFATE [Concomitant]
     Active Substance: MORPHINE SULFATE
     Indication: Product used for unknown indication
     Dosage: 60 MILLIGRAM, QD
     Route: 048
  71. MORPHINE SULFATE [Concomitant]
     Active Substance: MORPHINE SULFATE
     Dosage: 120 MILLIGRAM, UNK
     Route: 048
  72. MORPHINE SULFATE [Concomitant]
     Active Substance: MORPHINE SULFATE
     Dosage: 10 MILLIGRAM, DAILY
     Route: 065
     Dates: start: 20161101, end: 20161102

REACTIONS (12)
  - Haemoglobin decreased [Recovered/Resolved]
  - Lower respiratory tract infection [Recovered/Resolved]
  - Ejection fraction decreased [Not Recovered/Not Resolved]
  - Haemoglobin decreased [Recovered/Resolved]
  - Neutropenia [Recovered/Resolved]
  - Lacrimation increased [Recovered/Resolved]
  - Rhinorrhoea [Recovered/Resolved]
  - Ejection fraction decreased [Not Recovered/Not Resolved]
  - Anaemia [Recovered/Resolved]
  - Off label use [Unknown]
  - Intentional product use issue [Unknown]
  - Rhinorrhoea [Not Recovered/Not Resolved]
